FAERS Safety Report 7183711-7 (Version None)
Quarter: 2010Q4

REPORT INFORMATION
  Report Type: 
  Country: None (occurrence: None)
  Receive Date: 20101222
  Receipt Date: 20101209
  Transmission Date: 20110411
  Serious: Yes (Other)
  Sender: FDA-Public Use
  Company Number: PHHY2010GR83670

PATIENT
  Sex: Female

DRUGS (3)
  1. ACLASTA [Suspect]
  2. ACLASTA [Suspect]
  3. ACLASTA [Suspect]

REACTIONS (2)
  - ALBUMIN URINE [None]
  - NEPHROLITHIASIS [None]
